FAERS Safety Report 9607707 (Version 2)
Quarter: 2013Q4

REPORT INFORMATION
  Report Type: Spontaneous
  Country: GB (occurrence: GB)
  Receive Date: 20131009
  Receipt Date: 20131028
  Transmission Date: 20140711
  Serious: Yes (Other)
  Sender: FDA-Public Use
  Company Number: GB-009507513-1310GBR000908

PATIENT
  Age: 71 Year
  Sex: 0

DRUGS (1)
  1. LOSARTAN POTASSIUM [Suspect]
     Dosage: UNK
     Route: 048

REACTIONS (2)
  - Atrial fibrillation [Unknown]
  - Product substitution issue [Unknown]
